FAERS Safety Report 10888155 (Version 1)
Quarter: 2015Q1

REPORT INFORMATION
  Report Type: Spontaneous
  Country: US (occurrence: US)
  Receive Date: 20150304
  Receipt Date: 20150304
  Transmission Date: 20150721
  Serious: No
  Sender: FDA-Public Use
  Company Number: US-AMGEN-USASP2014036417

PATIENT
  Age: 63 Year
  Sex: Female

DRUGS (19)
  1. CALCIUM 600 + D [Concomitant]
     Active Substance: CALCIUM\VITAMIN D
     Dosage: TAKE 1 TABLET 2 TIMES/WK
     Route: 048
  2. FOLIC ACID. [Concomitant]
     Active Substance: FOLIC ACID
     Dosage: 1 MG, TAKE 3 TABLETS BY MOUTH DAILY
     Route: 048
     Dates: start: 20111220
  3. LYRICA [Concomitant]
     Active Substance: PREGABALIN
     Dosage: 100 MG, QHS, TAKE ONE CAPSULE
     Route: 048
  4. BISOPROLOL FUMARATE. [Concomitant]
     Active Substance: BISOPROLOL FUMARATE
     Dosage: TAKE ONE TABLET ONCE DAILY
  5. PREDNISONE. [Concomitant]
     Active Substance: PREDNISONE
     Dosage: 5 MG, TAKE 3 TABLETS BY MOUTH EACH MORNING
     Route: 048
     Dates: start: 20140514
  6. PREDNISONE. [Concomitant]
     Active Substance: PREDNISONE
     Dosage: 1 MG, ORAL TABLET
     Route: 048
     Dates: start: 20131230
  7. HYDROCODONE BITARTRATE AND ACETAMINOPHEN [Concomitant]
     Active Substance: ACETAMINOPHEN\HYDROCODONE BITARTRATE
     Dosage: 10-325 MG, TAKE ONE TABLET BY MOUTH EVERY 3 HOURS AS NEEDED
     Route: 048
     Dates: start: 20140523
  8. IRON [Concomitant]
     Active Substance: IRON
     Dosage: 160 (50 FE) MG TBCR, TAKE 1 TABLET, BID
  9. LEFLUNOMIDE. [Concomitant]
     Active Substance: LEFLUNOMIDE
     Dosage: 20 MG, TAKE 1 TABLET BY MOUTH DAILY WITH FOOD
     Dates: start: 20130107
  10. OMEPRAZOLE. [Concomitant]
     Active Substance: OMEPRAZOLE
     Dosage: 40 MG, QD TAKE 1 TABLET DAILY
     Route: 048
     Dates: start: 20111206
  11. SULFASALAZINE. [Concomitant]
     Active Substance: SULFASALAZINE
     Indication: RHEUMATOID ARTHRITIS
     Dosage: 500 MG, BID, TAKE 2 TABLET
     Route: 048
     Dates: start: 20120710
  12. VITAMIN D                          /00107901/ [Concomitant]
     Active Substance: ERGOCALCIFEROL
     Dosage: 1000 UNIT, QD, TAKE 1 TABLET
     Route: 048
  13. PREDNISONE. [Concomitant]
     Active Substance: PREDNISONE
     Dosage: 10 MG, TAKE 4 TABLETS DAILY FOR 3 DAYS, 3 TABLET DAILY FOR 3 DAYS, 2 TABLET DAILY FOR 3 DAYS
     Route: 048
     Dates: start: 20140401
  14. VITAMIN C [Concomitant]
     Active Substance: ASCORBIC ACID
     Dosage: 500 MG, BID, TAKE 1 TABLET
     Route: 048
     Dates: start: 20120326
  15. CELEBREX [Concomitant]
     Active Substance: CELECOXIB
     Dosage: TAKE ONE CAPSULE 200 MG, BID
     Route: 048
     Dates: start: 20130103
  16. ENBREL [Suspect]
     Active Substance: ETANERCEPT
     Indication: RHEUMATOID ARTHRITIS
     Dosage: 50 MG, QWK
     Route: 065
     Dates: start: 20131105, end: 201403
  17. MAGNESIUM OXIDE. [Concomitant]
     Active Substance: MAGNESIUM OXIDE
     Dosage: 400 MG, QD, 1 TABLET DAILY
  18. PREDNISONE. [Concomitant]
     Active Substance: PREDNISONE
     Dosage: 50 MG, UNK
  19. RECLAST [Concomitant]
     Active Substance: ZOLEDRONIC ACID
     Dosage: 5 MG, UNK

REACTIONS (3)
  - Activities of daily living impaired [Recovered/Resolved]
  - Sinusitis [Recovered/Resolved]
  - Gait disturbance [Not Recovered/Not Resolved]

NARRATIVE: CASE EVENT DATE: 201403
